FAERS Safety Report 5926817-X (Version None)
Quarter: 2008Q4

REPORT INFORMATION
  Report Type: 
  Country: None (occurrence: None)
  Receive Date: 20081022
  Receipt Date: 20081021
  Transmission Date: 20090506
  Serious: Yes (Hospitalization)
  Sender: FDA-Public Use
  Company Number: DK-BRISTOL-MYERS SQUIBB COMPANY-14346084

PATIENT
  Age: 44 Year
  Sex: Female

DRUGS (1)
  1. APROVEL TABS 150 MG [Suspect]
     Route: 048
     Dates: start: 20030411, end: 20080624

REACTIONS (1)
  - AUTOIMMUNE HEPATITIS [None]
